FAERS Safety Report 7302024-3 (Version None)
Quarter: 2011Q1

REPORT INFORMATION
  Report Type: 
  Country: None (occurrence: None)
  Receive Date: 20110218
  Receipt Date: 20110211
  Transmission Date: 20110831
  Serious: Yes (Death)
  Sender: FDA-Public Use
  Company Number: ZA-PFIZER INC-2011026817

PATIENT
  Age: 70 Year
  Sex: Male

DRUGS (4)
  1. ZYVOX [Suspect]
  2. INVANZ [Concomitant]
  3. MERONEM [Concomitant]
  4. METRONIDAZOLE [Concomitant]

REACTIONS (3)
  - RENAL FAILURE ACUTE [None]
  - GANGRENE [None]
  - RESPIRATORY FAILURE [None]
